FAERS Safety Report 10050205 (Version 2)
Quarter: 2014Q2

REPORT INFORMATION
  Report Type: Report from Study
  Country: JP (occurrence: JP)
  Receive Date: 20140401
  Receipt Date: 20140401
  Transmission Date: 20141212
  Serious: Yes (Death, Life-Threatening)
  Sender: FDA-Public Use
  Company Number: JP-PFIZER INC-2014074347

PATIENT
  Age: 58 Year
  Sex: Female
  Weight: 45 kg

DRUGS (10)
  1. REVATIO [Suspect]
     Indication: PULMONARY ARTERIAL HYPERTENSION
     Dosage: 20 MG, 3X/DAY
     Route: 048
     Dates: start: 20100729
  2. PARIET [Concomitant]
     Dosage: UNK
     Route: 048
  3. ALFAROL [Concomitant]
     Dosage: UNK
     Route: 048
  4. GASMOTIN [Concomitant]
     Dosage: UNK
     Route: 048
  5. PREDONINE [Concomitant]
     Dosage: UNK
     Route: 048
  6. TRACLEER [Concomitant]
     Indication: PULMONARY HYPERTENSION
     Dosage: UNK
     Route: 048
  7. IMURAN [Concomitant]
     Dosage: UNK
     Route: 048
  8. BAKTAR [Concomitant]
     Dosage: UNK
     Route: 048
     Dates: start: 20100901
  9. LASIX [Concomitant]
     Indication: PULMONARY HYPERTENSION
     Dosage: UNK
     Route: 048
     Dates: start: 20120114
  10. OXYGEN [Concomitant]
     Dosage: UNK

REACTIONS (2)
  - Death [Fatal]
  - Interstitial lung disease [Not Recovered/Not Resolved]
